FAERS Safety Report 8806224 (Version 1)
Quarter: 2012Q4

REPORT INFORMATION
  Report Type: 
  Country: US (occurrence: None)
  Receive Date: 20120919
  Receipt Date: 20120919
  Transmission Date: 20130627
  Serious: No
  Sender: FDA-Public Use
  Company Number: None

PATIENT
  Sex: Female

DRUGS (1)
  1. DILAUDID [Suspect]
     Route: 042

REACTIONS (5)
  - Dizziness [None]
  - Feeling abnormal [None]
  - Fear [None]
  - Medication error [None]
  - Drug administration error [None]
